FAERS Safety Report 12386750 (Version 1)
Quarter: 2016Q2

REPORT INFORMATION
  Report Type: Spontaneous
  Country: US (occurrence: US)
  Receive Date: 20160519
  Receipt Date: 20160519
  Transmission Date: 20160815
  Serious: Yes (Other)
  Sender: FDA-Public Use
  Company Number: US-PFIZER INC-2016263171

PATIENT
  Sex: Male

DRUGS (1)
  1. XANAX [Suspect]
     Active Substance: ALPRAZOLAM
     Indication: INSOMNIA
     Dosage: UNK

REACTIONS (6)
  - Intentional product misuse [Unknown]
  - Suicidal behaviour [Unknown]
  - Drug withdrawal syndrome [Unknown]
  - Burning sensation [Unknown]
  - Seizure [Unknown]
  - Abasia [Unknown]
